FAERS Safety Report 5080283-8 (Version None)
Quarter: 2006Q3

REPORT INFORMATION
  Report Type: 
  Country: None (occurrence: None)
  Receive Date: 20060815
  Receipt Date: 20060712
  Transmission Date: 20061208
  Serious: Yes (Hospitalization)
  Sender: FDA-Public Use
  Company Number: JP-AVENTIS-200612150JP

PATIENT
  Age: 77 Year
  Sex: Female
  Weight: 44 kg

DRUGS (4)
  1. AMARYL [Suspect]
     Indication: DIABETES MELLITUS
     Route: 048
  2. NIVADIL [Concomitant]
     Route: 048
  3. ALDACTONE [Concomitant]
     Route: 048
  4. 8-HOUR BAYER [Concomitant]
     Route: 048

REACTIONS (2)
  - HYPOGLYCAEMIC COMA [None]
  - RENAL IMPAIRMENT [None]
